FAERS Safety Report 19708727 (Version 3)
Quarter: 2021Q4

REPORT INFORMATION
  Report Type: Spontaneous
  Country: US (occurrence: US)
  Receive Date: 20210816
  Receipt Date: 20211209
  Transmission Date: 20220303
  Serious: Yes (Other)
  Sender: FDA-Public Use
  Company Number: NVSC2021US180268

PATIENT
  Sex: Female

DRUGS (1)
  1. ENTRESTO [Suspect]
     Active Substance: SACUBITRIL\VALSARTAN
     Indication: Product used for unknown indication
     Dosage: UNK, BID; TWO TIMES A DAY
     Route: 065

REACTIONS (7)
  - Plasma cell myeloma [Unknown]
  - Cardiac failure congestive [Unknown]
  - Caudal regression syndrome [Unknown]
  - Dyspnoea [Unknown]
  - Cough [Unknown]
  - Peripheral swelling [Unknown]
  - Lumbar spinal stenosis [Unknown]
